FAERS Safety Report 6936018-4 (Version None)
Quarter: 2010Q3

REPORT INFORMATION
  Report Type: 
  Country: None (occurrence: None)
  Receive Date: 20100816
  Receipt Date: 20090720
  Transmission Date: 20110219
  Serious: Yes (Hospitalization)
  Sender: FDA-Public Use
  Company Number: US-WYE-H10205509

PATIENT
  Age: 82 Year
  Sex: Female
  Weight: 49.7 kg

DRUGS (2)
  1. TYGACIL [Suspect]
     Indication: LUNG INFECTION
     Dosage: 50 MG 1X PER 12 HR, INTRAVENOUS
     Route: 042
     Dates: start: 20090526, end: 20090528
  2. TYGACIL [Suspect]
     Indication: STAPHYLOCOCCAL INFECTION
     Dosage: 50 MG 1X PER 12 HR, INTRAVENOUS
     Route: 042
     Dates: start: 20090526, end: 20090528

REACTIONS (2)
  - ALANINE AMINOTRANSFERASE INCREASED [None]
  - ASPARTATE AMINOTRANSFERASE INCREASED [None]
